FAERS Safety Report 25492638 (Version 1)
Quarter: 2025Q2

REPORT INFORMATION
  Report Type: Spontaneous
  Country: US (occurrence: US)
  Receive Date: 20250630
  Receipt Date: 20250630
  Transmission Date: 20250716
  Serious: Yes (Other)
  Sender: COOPERSURGICAL
  Company Number: US-COOPERSURGICAL, INC.-2025CPS005090

PATIENT
  Age: 26 Year
  Sex: Female
  Weight: 75.737 kg

DRUGS (1)
  1. PARAGARD T 380A [Suspect]
     Active Substance: COPPER
     Route: 015
     Dates: start: 20171114

REACTIONS (15)
  - Reproductive complication associated with device [Not Recovered/Not Resolved]
  - Injury [Recovered/Resolved]
  - Device breakage [Recovered/Resolved]
  - Foreign body in reproductive tract [Recovered/Resolved]
  - Complication of device removal [Recovered/Resolved]
  - Uterine perforation [Recovered/Resolved]
  - Embedded device [Recovered/Resolved]
  - Emotional distress [Not Recovered/Not Resolved]
  - Post-traumatic stress disorder [Unknown]
  - Depression [Unknown]
  - Anxiety [Unknown]
  - Device material issue [Recovered/Resolved]
  - Dyspareunia [Recovered/Resolved]
  - Pelvic pain [Recovered/Resolved]
  - Abnormal uterine bleeding [Recovered/Resolved]

NARRATIVE: CASE EVENT DATE: 20230502
